FAERS Safety Report 17378897 (Version 1)
Quarter: 2020Q1

REPORT INFORMATION
  Report Type: Spontaneous
  Country: US (occurrence: US)
  Receive Date: 20200206
  Receipt Date: 20200206
  Transmission Date: 20200409
  Serious: No
  Sender: FDA-Public Use
  Company Number: US-ABBVIE-19K-163-2674227-00

PATIENT
  Age: 57 Year
  Sex: Female
  Weight: 89.89 kg

DRUGS (1)
  1. HUMIRA [Suspect]
     Active Substance: ADALIMUMAB
     Indication: CROHN^S DISEASE
     Route: 058
     Dates: start: 201806

REACTIONS (13)
  - Abdominal distension [Not Recovered/Not Resolved]
  - Depression [Not Recovered/Not Resolved]
  - Vomiting [Recovered/Resolved]
  - Erythema [Not Recovered/Not Resolved]
  - Weight increased [Not Recovered/Not Resolved]
  - Emotional disorder [Not Recovered/Not Resolved]
  - Anxiety [Not Recovered/Not Resolved]
  - Stress [Not Recovered/Not Resolved]
  - Rash [Recovering/Resolving]
  - Abdominal pain [Recovering/Resolving]
  - Rash [Not Recovered/Not Resolved]
  - Pain in extremity [Not Recovered/Not Resolved]
  - Abdominal distension [Recovering/Resolving]

NARRATIVE: CASE EVENT DATE: 201806
